FAERS Safety Report 4984923-0 (Version None)
Quarter: 2006Q2

REPORT INFORMATION
  Report Type: 
  Country: None (occurrence: None)
  Receive Date: 20060427
  Receipt Date: 20060127
  Transmission Date: 20061013
  Serious: Yes (Hospitalization)
  Sender: FDA-Public Use
  Company Number: PHBS2006ZA01574

PATIENT
  Age: 16 Year
  Sex: Female

DRUGS (1)
  1. RITALIN LA [Suspect]
     Dosage: 400 MG, ONCE/SINGLE
     Route: 048
     Dates: start: 20060101, end: 20060101

REACTIONS (6)
  - AGITATION [None]
  - ANXIETY [None]
  - DISORIENTATION [None]
  - HYPERTENSION [None]
  - SUICIDE ATTEMPT [None]
  - TREMOR [None]
